FAERS Safety Report 9046818 (Version 1)
Quarter: 2013Q1

REPORT INFORMATION
  Report Type: Spontaneous
  Country: US (occurrence: None)
  Receive Date: 20130128
  Receipt Date: 20130128
  Transmission Date: 20140127
  Serious: Yes (Hospitalization)
  Sender: FDA-Public Use
  Company Number: None

PATIENT
  Age: 65 Year
  Sex: Male

DRUGS (1)
  1. XOLAIR 150 MG SDV GENENTECH [Suspect]
     Indication: ASTHMA
     Route: 058

REACTIONS (1)
  - Pneumonia [None]
